FAERS Safety Report 7898969-6 (Version None)
Quarter: 2011Q4

REPORT INFORMATION
  Report Type: 
  Country: None (occurrence: None)
  Receive Date: 20111107
  Receipt Date: 20111028
  Transmission Date: 20120403
  Serious: Yes (Other)
  Sender: FDA-Public Use
  Company Number: US-ASTRAZENECA-2011SE65401

PATIENT
  Age: 61 Year
  Sex: Female
  Weight: 72.6 kg

DRUGS (5)
  1. TOPIRIMATE [Concomitant]
  2. URISODOL [Concomitant]
  3. FASLODEX [Suspect]
     Indication: BREAST CANCER STAGE IV
     Route: 030
     Dates: start: 20111006
  4. CELEBREX [Concomitant]
  5. PROZAC [Concomitant]

REACTIONS (6)
  - BONE NEOPLASM MALIGNANT [None]
  - NEOPLASM MALIGNANT [None]
  - PAIN IN EXTREMITY [None]
  - INJECTION SITE PAIN [None]
  - INCORRECT ROUTE OF DRUG ADMINISTRATION [None]
  - ARTHRALGIA [None]
